FAERS Safety Report 10949376 (Version 2)
Quarter: 2015Q2

REPORT INFORMATION
  Report Type: Report from Study
  Country: US (occurrence: US)
  Receive Date: 20150324
  Receipt Date: 20150508
  Transmission Date: 20150821
  Serious: Yes (Hospitalization, Other)
  Sender: FDA-Public Use
  Company Number: US-SA-2014SA157148

PATIENT
  Age: 65 Year
  Sex: Male

DRUGS (2)
  1. AUBAGIO [Suspect]
     Active Substance: TERIFLUNOMIDE
     Indication: MULTIPLE SCLEROSIS
     Route: 048
     Dates: start: 20140210
  2. REBIF [Concomitant]
     Active Substance: INTERFERON BETA-1A
     Indication: MULTIPLE SCLEROSIS
     Dates: start: 20090901, end: 20140210

REACTIONS (6)
  - Multiple sclerosis relapse [Unknown]
  - Product packaging issue [Unknown]
  - Fall [Unknown]
  - Skeletal injury [Unknown]
  - Dyspnoea [Unknown]
  - Insomnia [Unknown]
